FAERS Safety Report 18425177 (Version 1)
Quarter: 2020Q4

REPORT INFORMATION
  Report Type: Spontaneous
  Country: US (occurrence: US)
  Receive Date: 20201025
  Receipt Date: 20201025
  Transmission Date: 20210114
  Serious: No
  Sender: FDA-Public Use
  Company Number: None

PATIENT
  Age: 70 Year
  Sex: Female
  Weight: 83.4 kg

DRUGS (3)
  1. DEXAMETHASONE 6MG [Concomitant]
     Dates: start: 20201024
  2. NORCO 5-325MG [Concomitant]
     Dates: start: 20201024
  3. REMDESIVIR. [Suspect]
     Active Substance: REMDESIVIR
     Indication: COVID-19 PNEUMONIA
     Dosage: ?          OTHER FREQUENCY:ONE TIME ONLY;?
     Route: 042
     Dates: start: 20201024, end: 20201024

REACTIONS (3)
  - Hypotension [None]
  - Pain in extremity [None]
  - Tachycardia [None]

NARRATIVE: CASE EVENT DATE: 20201025
